FAERS Safety Report 17063329 (Version 1)
Quarter: 2019Q4

REPORT INFORMATION
  Report Type: Spontaneous
  Country: US (occurrence: US)
  Receive Date: 20191023
  Receipt Date: 20191023
  Transmission Date: 20200122
  Serious: Yes (Death)
  Sender: FDA-Public Use
  Company Number: None

PATIENT
  Sex: Male

DRUGS (2)
  1. ATANDI [Concomitant]
  2. CYCLOPHOSPHAMIDE 50 MG CAPSULES [Suspect]
     Active Substance: CYCLOPHOSPHAMIDE
     Indication: PROSTATE CANCER
     Route: 048
     Dates: start: 20191001

REACTIONS (1)
  - Death [None]
